FAERS Safety Report 17909054 (Version 3)
Quarter: 2020Q3

REPORT INFORMATION
  Report Type: Report from Study
  Country: None (occurrence: NL)
  Receive Date: 20200617
  Receipt Date: 20200921
  Transmission Date: 20201103
  Serious: Yes (Other)
  Sender: FDA-Public Use
  Company Number: NL-ABBVIE-19S-114-2665694-00

PATIENT
  Age: 71 Year
  Sex: Male
  Weight: 69 kg

DRUGS (9)
  1. DUODOPA [Suspect]
     Active Substance: CARBIDOPA\LEVODOPA
     Dosage: CD: 5.3 ND 2.0
     Route: 050
     Dates: start: 2019, end: 2019
  2. NEUPRO PLASTER [Concomitant]
  3. CLOZAPINE. [Concomitant]
     Active Substance: CLOZAPINE
     Indication: PARKINSON^S DISEASE
  4. MADOPAR HBS [Concomitant]
     Active Substance: BENSERAZIDE HYDROCHLORIDE\LEVODOPA
     Indication: PRODUCT USED FOR UNKNOWN INDICATION
  5. DUODOPA [Suspect]
     Active Substance: CARBIDOPA\LEVODOPA
     Dosage: MD: 14.5, CD: 4.9, ED: 0.0 24 HOUR ADMINISTRATION, 20 MG/ML 5 MG/ML
     Route: 050
     Dates: start: 2019
  6. NEUPRO PLASTER [Concomitant]
  7. MOVICOLON [Concomitant]
     Active Substance: POLYETHYLENE GLYCOL 3350\POTASSIUM CHLORIDE\SODIUM BICARBONATE\SODIUM CHLORIDE
     Indication: ABNORMAL FAECES
     Dosage: 3 SACHETS
  8. DUODOPA [Suspect]
     Active Substance: CARBIDOPA\LEVODOPA
     Indication: PARKINSON^S DISEASE
     Dosage: CD: 4.9
     Route: 050
     Dates: start: 20190121, end: 2019
  9. NEUPRO PLASTER [Concomitant]
     Indication: PARKINSON^S DISEASE

REACTIONS (51)
  - Memory impairment [Not Recovered/Not Resolved]
  - Pain [Not Recovered/Not Resolved]
  - Stoma site discharge [Not Recovered/Not Resolved]
  - Dysuria [Not Recovered/Not Resolved]
  - Malignant melanoma [Not Recovered/Not Resolved]
  - Foreign body in respiratory tract [Recovering/Resolving]
  - Mydriasis [Not Recovered/Not Resolved]
  - Dystonia [Not Recovered/Not Resolved]
  - Freezing phenomenon [Not Recovered/Not Resolved]
  - Drug ineffective [Not Recovered/Not Resolved]
  - Device issue [Unknown]
  - Faeces hard [Not Recovered/Not Resolved]
  - Feeling abnormal [Not Recovered/Not Resolved]
  - Weight decreased [Recovered/Resolved]
  - Psychomotor hyperactivity [Not Recovered/Not Resolved]
  - General physical health deterioration [Not Recovered/Not Resolved]
  - Musculoskeletal stiffness [Not Recovered/Not Resolved]
  - Pain in extremity [Not Recovered/Not Resolved]
  - Stoma site inflammation [Recovered/Resolved]
  - Fall [Not Recovered/Not Resolved]
  - Stoma site hypergranulation [Not Recovered/Not Resolved]
  - Balance disorder [Not Recovered/Not Resolved]
  - Restlessness [Not Recovered/Not Resolved]
  - Musculoskeletal disorder [Recovering/Resolving]
  - Gait disturbance [Not Recovered/Not Resolved]
  - Clubbing [Not Recovered/Not Resolved]
  - Nausea [Not Recovered/Not Resolved]
  - Suspiciousness [Not Recovered/Not Resolved]
  - Flat affect [Not Recovered/Not Resolved]
  - Weight increased [Not Recovered/Not Resolved]
  - Frequent bowel movements [Not Recovered/Not Resolved]
  - Mobility decreased [Not Recovered/Not Resolved]
  - Nightmare [Not Recovered/Not Resolved]
  - Diarrhoea [Recovered/Resolved]
  - On and off phenomenon [Not Recovered/Not Resolved]
  - Stoma site reaction [Not Recovered/Not Resolved]
  - On and off phenomenon [Unknown]
  - Delusion [Not Recovered/Not Resolved]
  - Confusional state [Not Recovered/Not Resolved]
  - Anxiety [Not Recovered/Not Resolved]
  - Unevaluable event [Recovering/Resolving]
  - Device dislocation [Unknown]
  - Device difficult to use [Recovered/Resolved]
  - Muscle spasms [Not Recovered/Not Resolved]
  - Urinary tract obstruction [Not Recovered/Not Resolved]
  - Abnormal behaviour [Not Recovered/Not Resolved]
  - Hypophagia [Recovered/Resolved]
  - Tremor [Not Recovered/Not Resolved]
  - Obsessive-compulsive disorder [Unknown]
  - Grip strength decreased [Not Recovered/Not Resolved]
  - Fall [Recovered/Resolved]

NARRATIVE: CASE EVENT DATE: 2019
